FAERS Safety Report 7895848-5 (Version None)
Quarter: 2011Q4

REPORT INFORMATION
  Report Type: 
  Country: None (occurrence: None)
  Receive Date: 20111106
  Receipt Date: 20110831
  Transmission Date: 20120403
  Serious: No
  Sender: FDA-Public Use
  Company Number: US-AMGEN-USASP2011044736

PATIENT
  Age: 46 Year
  Sex: Female

DRUGS (2)
  1. ENBREL [Suspect]
     Indication: RHEUMATOID ARTHRITIS
     Dosage: 50 MG, QWK
     Dates: start: 20090601, end: 20100301
  2. HUMIRA [Concomitant]

REACTIONS (7)
  - INJECTION SITE PAIN [None]
  - INJECTION SITE ERYTHEMA [None]
  - PNEUMONIA [None]
  - KIDNEY INFECTION [None]
  - RHEUMATOID ARTHRITIS [None]
  - UPPER RESPIRATORY TRACT INFECTION [None]
  - INJECTION SITE SWELLING [None]
